FAERS Safety Report 10240154 (Version 2)
Quarter: 2014Q2

REPORT INFORMATION
  Report Type: Spontaneous
  Country: US (occurrence: US)
  Receive Date: 20140617
  Receipt Date: 20140617
  Transmission Date: 20141212
  Serious: Yes (Life-Threatening)
  Sender: FDA-Public Use
  Company Number: US-ROCHE-1406705

PATIENT
  Age: 43 Year
  Sex: Female
  Weight: 93.98 kg

DRUGS (6)
  1. XOLAIR [Suspect]
     Indication: CHRONIC SPONTANEOUS URTICARIA
     Route: 058
     Dates: start: 20140502, end: 20140522
  2. DOXEPIN [Concomitant]
     Indication: PRURITUS
     Route: 048
     Dates: start: 20140606
  3. DOXEPIN [Concomitant]
     Indication: URTICARIA
  4. ZYRTEC [Concomitant]
     Indication: PRURITUS
     Route: 048
  5. ZYRTEC [Concomitant]
     Indication: URTICARIA
  6. ALLEGRA [Concomitant]
     Indication: URTICARIA
     Route: 048

REACTIONS (1)
  - Throat tightness [Recovered/Resolved]
